FAERS Safety Report 10922971 (Version 2)
Quarter: 2015Q1

REPORT INFORMATION
  Report Type: Spontaneous
  Country: JP (occurrence: JP)
  Receive Date: 20150317
  Receipt Date: 20150326
  Transmission Date: 20150721
  Serious: Yes (Hospitalization)
  Sender: FDA-Public Use
  Company Number: JP-PFIZER INC-2015083683

PATIENT
  Age: 7 Decade
  Sex: Female

DRUGS (1)
  1. TORISEL [Suspect]
     Active Substance: TEMSIROLIMUS
     Indication: RENAL CELL CARCINOMA
     Dosage: UNK
     Route: 041
     Dates: start: 20120411, end: 20121126

REACTIONS (4)
  - Injection site erythema [Recovered/Resolved]
  - Ascites [Recovered/Resolved]
  - Face oedema [Recovered/Resolved]
  - Fluid retention [Recovered/Resolved]
